FAERS Safety Report 4395151-4 (Version None)
Quarter: 2004Q3

REPORT INFORMATION
  Report Type: 
  Country: None (occurrence: None)
  Receive Date: 20040706
  Receipt Date: 20040622
  Transmission Date: 20050211
  Serious: Yes (Other)
  Sender: FDA-Public Use
  Company Number: 2004218366FR

PATIENT
  Age: 77 Year
  Sex: Female

DRUGS (4)
  1. XALATAN [Suspect]
     Indication: GLAUCOMA
     Dosage: OPHTHALMIC
     Route: 047
     Dates: end: 20040101
  2. DIAMOX [Concomitant]
  3. DIFFU K [Concomitant]
  4. AZOPT [Concomitant]

REACTIONS (3)
  - CATARACT [None]
  - CORNEAL OEDEMA [None]
  - CORNEAL ULCER [None]
